FAERS Safety Report 5404831-0 (Version None)
Quarter: 2007Q3

REPORT INFORMATION
  Report Type: 
  Country: None (occurrence: None)
  Receive Date: 20070803
  Receipt Date: 20070731
  Transmission Date: 20080115
  Serious: Yes (Death, Other)
  Sender: FDA-Public Use
  Company Number: PHEH2007US10507

PATIENT
  Age: 87 Year
  Sex: Male

DRUGS (7)
  1. COREG [Suspect]
     Indication: CARDIAC DISORDER
     Dosage: 12.5 MG, UNK
     Dates: start: 20070601
  2. NORVASC [Suspect]
     Indication: CARDIAC DISORDER
  3. INSULIN [Concomitant]
  4. TAMSULOSIN HCL [Concomitant]
  5. ANTICOAGULANTS [Concomitant]
  6. CARDIOVASCULAR DRUGS [Concomitant]
  7. LOPRESSOR [Suspect]
     Indication: CARDIAC DISORDER

REACTIONS (5)
  - ANGIOPLASTY [None]
  - ARTERIAL OCCLUSIVE DISEASE [None]
  - CHEST PAIN [None]
  - DEATH [None]
  - VASCULAR GRAFT [None]
